FAERS Safety Report 19090120 (Version 5)
Quarter: 2021Q3

REPORT INFORMATION
  Report Type: Report from Study
  Country: US (occurrence: US)
  Receive Date: 20210404
  Receipt Date: 20210803
  Transmission Date: 20211014
  Serious: Yes (Hospitalization)
  Sender: FDA-Public Use
  Company Number: US-TEVA-2021-US-1893228

PATIENT
  Age: 44 Year
  Sex: Female

DRUGS (4)
  1. CADD LEGACY PUMP SMITHS [Suspect]
     Active Substance: DEVICE
     Dosage: MODEL: 6400; SERIAL 423471
  2. TREPROSTINIL MDV TEVA [Suspect]
     Active Substance: TREPROSTINIL
     Dosage: 50 NG/KG/MIN CONTINUOUS
     Route: 042
     Dates: start: 20210129
  3. TREPROSTINIL MDV TEVA [Suspect]
     Active Substance: TREPROSTINIL
     Dosage: 40 NG/KG/MIN CONTINUOUS
     Route: 042
     Dates: start: 20210223
  4. TREPROSTINIL MDV TEVA [Suspect]
     Active Substance: TREPROSTINIL
     Indication: PULMONARY ARTERIAL HYPERTENSION
     Dosage: 38NG/KG/MIN
     Route: 042
     Dates: start: 20210129

REACTIONS (10)
  - Hospitalisation [Unknown]
  - Vomiting [Unknown]
  - Speech disorder [Unknown]
  - Cardiac failure [Unknown]
  - Malaise [Not Recovered/Not Resolved]
  - Body temperature fluctuation [Unknown]
  - Pyrexia [Unknown]
  - Retching [Unknown]
  - Blood culture positive [Unknown]
  - Device infusion issue [Unknown]

NARRATIVE: CASE EVENT DATE: 20210322
